FAERS Safety Report 21418284 (Version 1)
Quarter: 2022Q4

REPORT INFORMATION
  Report Type: Spontaneous
  Country: US (occurrence: None)
  Receive Date: 20221005
  Receipt Date: 20221005
  Transmission Date: 20230113
  Serious: No
  Sender: FDA-Public Use
  Company Number: None

PATIENT
  Sex: Female
  Weight: 62.14 kg

DRUGS (12)
  1. DANAZOL [Suspect]
     Active Substance: DANAZOL
     Indication: Breast cancer female
     Dosage: FREQUENCY : DAILY;?
     Route: 048
     Dates: start: 202208, end: 20221005
  2. BENADRYL ALLERGY [Concomitant]
     Active Substance: DIPHENHYDRAMINE HYDROCHLORIDE
  3. FEXOFENADINE [Concomitant]
     Active Substance: FEXOFENADINE HYDROCHLORIDE
  4. FOLIC ACID [Concomitant]
     Active Substance: FOLIC ACID
  5. LISINOPRIL [Concomitant]
     Active Substance: LISINOPRIL
  6. MAGNESIUM OXIDE [Concomitant]
     Active Substance: MAGNESIUM OXIDE
  7. METOPROLOL [Concomitant]
     Active Substance: METOPROLOL
  8. MONTELUKAST [Concomitant]
     Active Substance: MONTELUKAST SODIUM
  9. OMEPRAZOLE [Concomitant]
     Active Substance: OMEPRAZOLE
  10. ROSUVASTATIN [Concomitant]
     Active Substance: ROSUVASTATIN
  11. VITAMIN C [Concomitant]
     Active Substance: ASCORBIC ACID
  12. ZOLPIDEM [Concomitant]
     Active Substance: ZOLPIDEM TARTRATE

REACTIONS (1)
  - Drug ineffective [None]
